FAERS Safety Report 6346330-8 (Version None)
Quarter: 2009Q3

REPORT INFORMATION
  Report Type: 
  Country: None (occurrence: None)
  Receive Date: 20090909
  Receipt Date: 20090909
  Transmission Date: 20100115
  Serious: Yes (Other)
  Sender: FDA-Public Use
  Company Number: US-JNJFOC-20090900510

PATIENT
  Sex: Male

DRUGS (2)
  1. RISPERIDONE [Suspect]
     Route: 048
  2. RISPERIDONE [Suspect]
     Indication: POST-TRAUMATIC STRESS DISORDER
     Route: 048

REACTIONS (2)
  - IRRITABILITY [None]
  - SUICIDAL IDEATION [None]
